FAERS Safety Report 20264599 (Version 1)
Quarter: 2021Q4

REPORT INFORMATION
  Report Type: Report from Study
  Country: ES (occurrence: ES)
  Receive Date: 20211231
  Receipt Date: 20211231
  Transmission Date: 20220303
  Serious: Yes (Hospitalization, Other)
  Sender: FDA-Public Use
  Company Number: None

PATIENT
  Age: 75 Year
  Sex: Female

DRUGS (1)
  1. DOXORUBICIN [Suspect]
     Active Substance: DOXORUBICIN
     Indication: Endometrial adenocarcinoma
     Dosage: DOXORUBICIN (202A)
     Route: 065
     Dates: start: 201912, end: 202001

REACTIONS (2)
  - Acute kidney injury [Recovered/Resolved]
  - Myocarditis [Recovered/Resolved]

NARRATIVE: CASE EVENT DATE: 20200124
